FAERS Safety Report 8511935-2 (Version None)
Quarter: 2012Q3

REPORT INFORMATION
  Report Type: 
  Country: None (occurrence: None)
  Receive Date: 20120716
  Receipt Date: 20120711
  Transmission Date: 20120928
  Serious: Yes (Death)
  Sender: FDA-Public Use
  Company Number: US-MYLANLABS-2011S1014897

PATIENT
  Age: 60 Year
  Sex: Female
  Weight: 77.11 kg

DRUGS (24)
  1. FENTANYL-100 [Suspect]
     Indication: BACK PAIN
     Dosage: CHANGE Q3D
     Route: 062
  2. ASPIRIN [Concomitant]
  3. HYDROCODONE [Concomitant]
  4. ADVAIR DISKUS 100/50 [Concomitant]
     Dosage: 250/50 UG/DOSE
     Route: 055
  5. FUROSEMIDE [Concomitant]
  6. MELOXICAM [Concomitant]
  7. NEXIUM [Concomitant]
  8. METOPROLOL SUCCINATE [Concomitant]
  9. NITROGLYCERIN [Concomitant]
     Dosage: PUMP
  10. FELDENE [Concomitant]
  11. VYTORIN [Concomitant]
     Dosage: 10-80MG
  12. SULFAMETHOXAZOLE [Concomitant]
  13. ALBUTEROL SULFATE [Concomitant]
     Route: 055
  14. BENAZEPRIL HYDROCHLORIDE [Concomitant]
  15. FENOFIBRATE [Concomitant]
     Indication: BLOOD TRIGLYCERIDES
  16. PROAIR HFA [Concomitant]
     Dosage: ONE TO TWO PUFFS EVERY 4-6 HOURS AS NEEDED
     Route: 055
  17. ALPRAZOLAM [Concomitant]
  18. BUPROPION HYDROCHLORIDE [Concomitant]
  19. LANTUS [Concomitant]
     Dosage: UNITS/ML
     Route: 058
  20. PAROXETINE [Concomitant]
  21. GABAPENTIN [Concomitant]
  22. NOVOLOG [Concomitant]
     Dosage: UNITS/ML
     Route: 058
  23. OXYCODONE/ACETAMINOPHEN [Concomitant]
     Indication: PAIN
     Dosage: 10MG/325MG 4 TIMES DAILY AS NEEDED
  24. WARFARIN SODIUM [Concomitant]

REACTIONS (1)
  - TOXICITY TO VARIOUS AGENTS [None]
